FAERS Safety Report 7789327-3 (Version None)
Quarter: 2011Q3

REPORT INFORMATION
  Report Type: 
  Country: None (occurrence: None)
  Receive Date: 20110930
  Receipt Date: 20110926
  Transmission Date: 20111222
  Serious: Yes (Hospitalization)
  Sender: FDA-Public Use
  Company Number: US-GLAXOSMITHKLINE-A0946363A

PATIENT
  Age: 77 Year
  Sex: Male

DRUGS (14)
  1. NOVOLOG [Concomitant]
  2. ATIVAN [Concomitant]
  3. DIGOXIN [Suspect]
     Indication: CARDIAC FAILURE CONGESTIVE
     Route: 048
  4. BLINDED STUDY MEDICATION [Suspect]
     Indication: TYPE 2 DIABETES MELLITUS
     Route: 048
     Dates: start: 20101021
  5. LIPITOR [Concomitant]
  6. BENADRYL [Concomitant]
  7. ARICEPT [Concomitant]
  8. LANTUS [Concomitant]
  9. COREG [Suspect]
     Indication: HYPERTENSION
     Dosage: 25MG PER DAY
     Route: 048
  10. LASIX [Suspect]
     Indication: HYPERTENSION
     Dosage: 80MG PER DAY
     Route: 048
  11. COUMADIN [Concomitant]
  12. ASPIRIN [Concomitant]
  13. LEXAPRO [Concomitant]
  14. LISINOPRIL [Concomitant]

REACTIONS (3)
  - BALANCE DISORDER [None]
  - FALL [None]
  - ANKLE FRACTURE [None]
